FAERS Safety Report 15684917 (Version 1)
Quarter: 2018Q4

REPORT INFORMATION
  Report Type: Spontaneous
  Country: FI (occurrence: FI)
  Receive Date: 20181204
  Receipt Date: 20181204
  Transmission Date: 20190205
  Serious: Yes (Other)
  Sender: FDA-Public Use
  Company Number: FI-LPDUSPRD-20182276

PATIENT
  Sex: Female

DRUGS (1)
  1. FERINJECT [Suspect]
     Active Substance: FERRIC CARBOXYMALTOSE
     Dosage: 500 MG
     Route: 041
     Dates: start: 20181114

REACTIONS (3)
  - Pain of skin [Unknown]
  - Skin reaction [Unknown]
  - Urticaria papular [Unknown]

NARRATIVE: CASE EVENT DATE: 20181114
